FAERS Safety Report 6232839-4 (Version None)
Quarter: 2009Q2

REPORT INFORMATION
  Report Type: 
  Country: None (occurrence: None)
  Receive Date: 20090617
  Receipt Date: 20080624
  Transmission Date: 20091009
  Serious: No
  Sender: FDA-Public Use
  Company Number: US-ASTRAZENECA-2008UW12649

PATIENT
  Age: 66 Year
  Sex: Female
  Weight: 64.9 kg

DRUGS (11)
  1. FASLODEX [Suspect]
     Indication: BREAST CANCER
     Route: 030
  2. FASLODEX [Suspect]
     Dosage: PATIENT HAD REACTION AFTER ABOUT 125MG FASLODEX GIVEN;PATIENT NOT GIVEN REMAINDER OF PRESCRIBED DOSE
     Route: 030
  3. ASPIRIN [Concomitant]
  4. SYNTHROID [Concomitant]
  5. CALCIUM [Concomitant]
  6. MULTI-VITAMIN [Concomitant]
  7. AMIODARONE [Concomitant]
  8. ADVAIR HFA [Concomitant]
  9. DIGOXIN [Concomitant]
  10. LASIX [Concomitant]
  11. ALDACTONE [Concomitant]

REACTIONS (5)
  - DIZZINESS [None]
  - DYSGEUSIA [None]
  - FEELING ABNORMAL [None]
  - FLUSHING [None]
  - PARAESTHESIA ORAL [None]
